FAERS Safety Report 7431705-6 (Version None)
Quarter: 2011Q2

REPORT INFORMATION
  Report Type: 
  Country: None (occurrence: None)
  Receive Date: 20110422
  Receipt Date: 20110415
  Transmission Date: 20111010
  Serious: Yes (Hospitalization)
  Sender: FDA-Public Use
  Company Number: US-BIOGENIDEC-2011BI014334

PATIENT
  Age: 39 Year
  Sex: Female

DRUGS (2)
  1. TYSABRI [Suspect]
     Indication: MULTIPLE SCLEROSIS
     Route: 042
     Dates: start: 20110301
  2. MIGRAINE MEDICATION (NOS) [Concomitant]
     Indication: MIGRAINE

REACTIONS (4)
  - ABASIA [None]
  - MENTAL STATUS CHANGES [None]
  - APHAGIA [None]
  - HALLUCINATION, VISUAL [None]
